FAERS Safety Report 5223359-4 (Version None)
Quarter: 2007Q1

REPORT INFORMATION
  Report Type: 
  Country: None (occurrence: None)
  Receive Date: 20061201
  Receipt Date: 20060718
  Transmission Date: 20070707
  Serious: No
  Sender: FDA-Public Use
  Company Number: 2006PV016750

PATIENT
  Age: 52 Year
  Sex: Female
  Weight: 86.637 kg

DRUGS (19)
  1. BYETTA [Suspect]
     Indication: DIABETES MELLITUS NON-INSULIN-DEPENDENT
     Dosage: SEE IMAGE
     Route: 058
     Dates: start: 20060401, end: 20060601
  2. BYETTA [Suspect]
     Indication: DIABETES MELLITUS NON-INSULIN-DEPENDENT
     Dosage: SEE IMAGE
     Route: 058
     Dates: start: 20060601, end: 20060601
  3. BYETTA [Suspect]
     Indication: DIABETES MELLITUS NON-INSULIN-DEPENDENT
     Dosage: SEE IMAGE
     Route: 058
     Dates: start: 20060710
  4. TRILEPTAL [Concomitant]
  5. NEXIUM [Concomitant]
  6. METFORMIN HCL [Concomitant]
  7. TRAZODONE HCL [Concomitant]
  8. VYTORIN [Concomitant]
  9. CITALOPRAM HYDROBROMIDE [Concomitant]
  10. NORVASC [Concomitant]
  11. AMBIEN [Concomitant]
  12. DIAZEPAM [Concomitant]
  13. ASPIRIN [Concomitant]
  14. AVANDIA [Concomitant]
  15. NITROGLYCERIN ^NM PHARMA^ [Concomitant]
  16. MICARDIS [Concomitant]
  17. HUMALOG [Concomitant]
  18. LANTUS [Concomitant]
  19. ANTIPSYCHOTIC MEDICATION [Suspect]
     Indication: DRUG USE FOR UNKNOWN INDICATION

REACTIONS (9)
  - ABDOMINAL DISTENSION [None]
  - CONSTIPATION [None]
  - CRYING [None]
  - HEADACHE [None]
  - NAUSEA [None]
  - PSYCHOTIC DISORDER [None]
  - UNEVALUABLE EVENT [None]
  - WEIGHT DECREASED [None]
  - WEIGHT INCREASED [None]
